FAERS Safety Report 9308663 (Version 1)
Quarter: 2013Q2

REPORT INFORMATION
  Report Type: Spontaneous
  Country: US (occurrence: US)
  Receive Date: 20130524
  Receipt Date: 20130524
  Transmission Date: 20140414
  Serious: No
  Sender: FDA-Public Use
  Company Number: US-B.I. PHARMACEUTICALS,INC./RIDGEFIELD-2013-BI-12095BP

PATIENT
  Age: 61 Year
  Sex: Male
  Weight: 92 kg

DRUGS (3)
  1. SPIRIVA [Suspect]
     Indication: CHRONIC OBSTRUCTIVE PULMONARY DISEASE
     Dosage: 18 MCG
     Route: 055
     Dates: start: 20130415
  2. PREDNISONE [Concomitant]
     Dosage: 4 MG
     Route: 048
  3. THYROXINE [Concomitant]
     Dosage: 150 MCG
     Route: 048

REACTIONS (1)
  - Incorrect route of drug administration [Recovered/Resolved]
